FAERS Safety Report 11170804 (Version 1)
Quarter: 2015Q2

REPORT INFORMATION
  Report Type: Spontaneous
  Country: US (occurrence: None)
  Receive Date: 20150605
  Receipt Date: 20150605
  Transmission Date: 20150821
  Serious: Yes (Hospitalization)
  Sender: FDA-Public Use
  Company Number: None

PATIENT
  Age: 67 Year
  Sex: Female
  Weight: 67.59 kg

DRUGS (6)
  1. ATENOLOL. [Concomitant]
     Active Substance: ATENOLOL
  2. CARISOPRODOL. [Concomitant]
     Active Substance: CARISOPRODOL
  3. SOMA [Concomitant]
     Active Substance: CARISOPRODOL
  4. ALLEGRA [Concomitant]
     Active Substance: FEXOFENADINE HYDROCHLORIDE
  5. ASPIRIN. [Concomitant]
     Active Substance: ASPIRIN
  6. AMIODARONE 200 [Suspect]
     Active Substance: AMIODARONE
     Indication: ILL-DEFINED DISORDER
     Route: 048
     Dates: start: 20141022, end: 20141101

REACTIONS (9)
  - Pain in extremity [None]
  - Dysstasia [None]
  - Back pain [None]
  - Hypoaesthesia [None]
  - Blindness unilateral [None]
  - Skin burning sensation [None]
  - Dizziness [None]
  - Flushing [None]
  - Skin exfoliation [None]

NARRATIVE: CASE EVENT DATE: 20141027
